FAERS Safety Report 6399816-4 (Version None)
Quarter: 2009Q4

REPORT INFORMATION
  Report Type: 
  Country: None (occurrence: None)
  Receive Date: 20091007
  Receipt Date: 20091007
  Transmission Date: 20100525
  Serious: No
  Sender: FDA-Public Use
  Company Number: None

PATIENT
  Sex: Female
  Weight: 72.5755 kg

DRUGS (2)
  1. DEXTROAMPHETAMINE AND AMPHETAMINE MIXED SALTS [Suspect]
     Indication: ATTENTION DEFICIT/HYPERACTIVITY DISORDER
     Dosage: 30 (ER) MG ONE PO QAM PO
     Route: 048
     Dates: start: 20090801
  2. DEXTROAMPHETAMINE AND AMPHETAMINE MIXED SALTS [Suspect]
     Indication: ATTENTION DEFICIT/HYPERACTIVITY DISORDER
     Dosage: 30 (ER) MG ONE PO QAM PO
     Route: 048
     Dates: start: 20090901

REACTIONS (1)
  - DRUG INEFFECTIVE [None]
